FAERS Safety Report 7914137-3 (Version None)
Quarter: 2011Q4

REPORT INFORMATION
  Report Type: 
  Country: None (occurrence: None)
  Receive Date: 20111110
  Receipt Date: 20111104
  Transmission Date: 20120403
  Serious: Yes (Other)
  Sender: FDA-Public Use
  Company Number: SE-GDP-11412242

PATIENT
  Sex: Female

DRUGS (7)
  1. ORACEA [Suspect]
     Indication: ROSACEA
     Dosage: ORAL
     Route: 048
     Dates: start: 20110905
  2. HYDREA [Concomitant]
  3. LEVOTHYROXINE SODIUM [Concomitant]
  4. SALURES [Concomitant]
  5. ENALAPRIL MALEATE [Concomitant]
  6. ACID ACETYLSALICYLIC [Concomitant]
  7. VITAMIN B-12 [Concomitant]

REACTIONS (6)
  - ASPARTATE AMINOTRANSFERASE INCREASED [None]
  - BLOOD BILIRUBIN INCREASED [None]
  - BLOOD ALKALINE PHOSPHATASE INCREASED [None]
  - ALANINE AMINOTRANSFERASE INCREASED [None]
  - BLOOD LACTATE DEHYDROGENASE INCREASED [None]
  - GAMMA-GLUTAMYLTRANSFERASE INCREASED [None]
